FAERS Safety Report 16584097 (Version 1)
Quarter: 2019Q3

REPORT INFORMATION
  Report Type: Spontaneous
  Country: DE (occurrence: DE)
  Receive Date: 20190717
  Receipt Date: 20190717
  Transmission Date: 20191004
  Serious: Yes (Hospitalization)
  Sender: FDA-Public Use
  Company Number: DE-TEVA-2019-DE-1076705

PATIENT
  Age: 79 Year
  Sex: Female
  Weight: 100 kg

DRUGS (12)
  1. METOPROLOL. [Concomitant]
     Active Substance: METOPROLOL
     Dosage: 50 MG, 1-0-0.5-0, TABLETS
     Route: 048
  2. PREGABALIN. [Concomitant]
     Active Substance: PREGABALIN
     Dosage: 100 MG, 0-0-1-0, CAPSULES
     Route: 048
  3. GLYCEROLTRINITRAT [Concomitant]
     Active Substance: NITROGLYCERIN
     Dosage: 0.4 MG, IF NECESSARY, METERED DOSE INHALER
     Route: 055
  4. LEVOTHYROXIN-NATRIUM [Concomitant]
     Active Substance: LEVOTHYROXINE SODIUM
     Dosage: 100 MICROGRAM, 1-0-0-0, TABLETS
     Route: 048
  5. INSULIN HUMAN [Concomitant]
     Active Substance: INSULIN HUMAN
     Dosage: 100 IU, ACCORDING TO THE SCHEME, AMPOULES
     Route: 058
  6. VIANI MITE 50/100MICROGRAM DISKUS [Concomitant]
     Dosage: 50|100 MICROGRAM, 1-0-1-0, DOSIERAEROSOL
     Route: 055
  7. SPIRONOLACTONE. [Suspect]
     Active Substance: SPIRONOLACTONE
     Dosage: 50 MG, 0.5-0-0-0, TABLETS
     Route: 048
  8. HUMALOG KWIKPEN 300E. 100E./ML [Concomitant]
     Dosage: 100 IU, ACCORDING TO THE DIAGRAM, PRE-FILLED SYRINGES
     Route: 058
  9. TORASEMIDE [Suspect]
     Active Substance: TORSEMIDE
     Dosage: 10 MG, 3-2-0-0, TABLETS
     Route: 048
  10. HYDROCHLOROTHIAZIDE. [Suspect]
     Active Substance: HYDROCHLOROTHIAZIDE
     Dosage: 25 MG, 1-0-0-0, TABLETS
     Route: 048
  11. COLECALCIFEROL [Concomitant]
     Active Substance: CHOLECALCIFEROL
     Dosage: 20000 IU, 4X / MONTH, CAPSULES
     Route: 048
  12. FLUVASTATIN [Concomitant]
     Active Substance: FLUVASTATIN SODIUM
     Dosage: 80 MG, 0-0-1-0, TABLETS
     Route: 048

REACTIONS (3)
  - Pain [Unknown]
  - Oedema peripheral [Unknown]
  - Product prescribing error [Unknown]
